FAERS Safety Report 15572856 (Version 1)
Quarter: 2018Q4

REPORT INFORMATION
  Report Type: Spontaneous
  Country: DE (occurrence: DE)
  Receive Date: 20181031
  Receipt Date: 20181031
  Transmission Date: 20190205
  Serious: Yes (Life-Threatening, Other)
  Sender: FDA-Public Use
  Company Number: DE-PRINSTON PHARMACEUTICAL INC.-2018PRN01536

PATIENT

DRUGS (1)
  1. VENLAFAXINE [Suspect]
     Active Substance: VENLAFAXINE HYDROCHLORIDE
     Indication: SUICIDE ATTEMPT
     Route: 065

REACTIONS (2)
  - Suicide attempt [Recovered/Resolved]
  - Hypomagnesaemia [Unknown]
